FAERS Safety Report 8789347 (Version 1)
Quarter: 2012Q4

REPORT INFORMATION
  Report Type: Spontaneous
  Country: AU (occurrence: None)
  Receive Date: 20120905
  Receipt Date: 20120905
  Transmission Date: 20130627
  Serious: Yes (Hospitalization)
  Sender: FDA-Public Use
  Company Number: 2012MA010368

PATIENT
  Age: 70 Year
  Sex: Male

DRUGS (2)
  1. CARBIDOPA AND LEVODOPA [Suspect]
     Indication: PARKINSON^S DISEASE
     Route: 048
  2. TOLACAPONE [Concomitant]

REACTIONS (6)
  - On and off phenomenon [None]
  - Freezing phenomenon [None]
  - Affect lability [None]
  - Device dislocation [None]
  - Pica [None]
  - Trichotillomania [None]
